FAERS Safety Report 7754094-6 (Version None)
Quarter: 2011Q3

REPORT INFORMATION
  Report Type: 
  Country: None (occurrence: None)
  Receive Date: 20110913
  Receipt Date: 20110829
  Transmission Date: 20111222
  Serious: Yes (Other)
  Sender: FDA-Public Use
  Company Number: US-1187792

PATIENT
  Sex: Male
  Weight: 99.7913 kg

DRUGS (3)
  1. DUREZOL [Suspect]
     Indication: POSTOPERATIVE CARE
     Dosage: 1 GTT 8X/DAY OD OPHTHALMIC
     Route: 047
     Dates: start: 20110825, end: 20110827
  2. DILTIAZEM HCL [Concomitant]
  3. SIMVASTATIN [Concomitant]

REACTIONS (6)
  - BLINDNESS TRANSIENT [None]
  - EYE PAIN [None]
  - OCULAR HYPERAEMIA [None]
  - LACRIMATION INCREASED [None]
  - INTRAOCULAR PRESSURE INCREASED [None]
  - VISION BLURRED [None]
